FAERS Safety Report 11054128 (Version 1)
Quarter: 2015Q2

REPORT INFORMATION
  Report Type: Other
  Country: US (occurrence: US)
  Receive Date: 20150422
  Receipt Date: 20150422
  Transmission Date: 20150821
  Serious: Yes (Other)
  Sender: FDA-Public Use
  Company Number: US-AUROBINDO-AUR-APL-2012-05417

PATIENT
  Sex: Male

DRUGS (1)
  1. SERTRALINE HYDROCHLORIDE TABLETS 25 MG [Suspect]
     Active Substance: SERTRALINE HYDROCHLORIDE
     Indication: PRODUCT USED FOR UNKNOWN INDICATION
     Dosage: UNK UNK,UNK,
     Route: 065

REACTIONS (7)
  - Anxiety [Unknown]
  - Decreased appetite [Unknown]
  - Fear [Unknown]
  - Obsessive thoughts [Unknown]
  - Social avoidant behaviour [Unknown]
  - Condition aggravated [Unknown]
  - Depressed mood [Unknown]
